FAERS Safety Report 8619311-9 (Version None)
Quarter: 2012Q3

REPORT INFORMATION
  Report Type: 
  Country: None (occurrence: None)
  Receive Date: 20120824
  Receipt Date: 20120820
  Transmission Date: 20120928
  Serious: Yes (Other)
  Sender: FDA-Public Use
  Company Number: JP-ELI_LILLY_AND_COMPANY-JP201208006138

PATIENT
  Age: 74 Year
  Sex: Male

DRUGS (2)
  1. GEMZAR [Suspect]
     Indication: BILE DUCT CANCER
     Route: 042
  2. CISPLATIN [Concomitant]
     Indication: BILE DUCT CANCER

REACTIONS (1)
  - CHOLANGITIS [None]
